FAERS Safety Report 24087276 (Version 2)
Quarter: 2025Q1

REPORT INFORMATION
  Report Type: Spontaneous
  Country: US (occurrence: US)
  Receive Date: 20240714
  Receipt Date: 20250222
  Transmission Date: 20250409
  Serious: No
  Sender: SANOFI AVENTIS
  Company Number: US-SA-SAC20240711001003

PATIENT
  Age: 85 Year
  Sex: Female
  Weight: 48.5 kg

DRUGS (1)
  1. DUPIXENT [Suspect]
     Active Substance: DUPILUMAB
     Indication: Illness
     Dosage: 300 MG, QOW
     Route: 058

REACTIONS (7)
  - Foreign body in eye [Unknown]
  - Chondrocalcinosis [Unknown]
  - Eye disorder [Unknown]
  - Lacrimation increased [Unknown]
  - Vision blurred [Unknown]
  - Arthralgia [Unknown]
  - Conjunctivitis [Unknown]

NARRATIVE: CASE EVENT DATE: 20240101
